FAERS Safety Report 6682007-7 (Version None)
Quarter: 2010Q2

REPORT INFORMATION
  Report Type: 
  Country: None (occurrence: None)
  Receive Date: 20100414
  Receipt Date: 20100414
  Transmission Date: 20101027
  Serious: Yes (Life-Threatening, Hospitalization)
  Sender: FDA-Public Use
  Company Number: None

PATIENT
  Age: 36 Year
  Sex: Male
  Weight: 129 kg

DRUGS (3)
  1. ZIPRASIDONE HCL [Suspect]
  2. HALOPERIDOL [Suspect]
  3. LITHIUM [Suspect]

REACTIONS (2)
  - HYPOTHERMIA [None]
  - WRIST FRACTURE [None]
